FAERS Safety Report 15643856 (Version 1)
Quarter: 2018Q4

REPORT INFORMATION
  Report Type: Spontaneous
  Country: US (occurrence: US)
  Receive Date: 20181121
  Receipt Date: 20181121
  Transmission Date: 20190205
  Serious: Yes (Hospitalization)
  Sender: FDA-Public Use
  Company Number: US-VERTEX PHARMACEUTICALS-2018-007407

PATIENT
  Age: 30 Year
  Sex: Male

DRUGS (1)
  1. SYMDEKO [Suspect]
     Active Substance: IVACAFTOR\TEZACAFTOR
     Indication: CYSTIC FIBROSIS
     Dosage: 100MG TEZACAFTOR/150MG IVACAFTOR AM; 150MG IVACAFTOR PM
     Route: 048
     Dates: start: 20180522, end: 20181115

REACTIONS (3)
  - Vaccination complication [Recovering/Resolving]
  - Cystic fibrosis respiratory infection suppression [Recovering/Resolving]
  - Rhinovirus infection [Unknown]

NARRATIVE: CASE EVENT DATE: 2018
